FAERS Safety Report 7415054-8 (Version None)
Quarter: 2011Q2

REPORT INFORMATION
  Report Type: 
  Country: None (occurrence: None)
  Receive Date: 20110414
  Receipt Date: 20110331
  Transmission Date: 20111010
  Serious: Yes (Hospitalization)
  Sender: FDA-Public Use
  Company Number: US-CELGENEUS-163-20785-11040053

PATIENT
  Sex: Female
  Weight: 67.5 kg

DRUGS (1)
  1. THALOMID\PLACEBO [Suspect]
     Dosage: 350 MILLIGRAM
     Route: 048
     Dates: start: 20101006, end: 20110322

REACTIONS (3)
  - MENTAL STATUS CHANGES [None]
  - FALL [None]
  - DIZZINESS [None]
